FAERS Safety Report 9289629 (Version 2)
Quarter: 2013Q3

REPORT INFORMATION
  Report Type: Spontaneous
  Country: JP (occurrence: JP)
  Receive Date: 20130515
  Receipt Date: 20130909
  Transmission Date: 20140515
  Serious: Yes (Other)
  Sender: FDA-Public Use
  Company Number: JP-009507513-1305JPN006900

PATIENT
  Age: 66 Year
  Sex: Female

DRUGS (6)
  1. GLACTIV [Suspect]
     Indication: TYPE 2 DIABETES MELLITUS
     Dosage: 50 MG, QD
     Route: 048
     Dates: start: 20130429, end: 20130507
  2. PIOGLITAZONE HYDROCHLORIDE [Suspect]
     Indication: TYPE 2 DIABETES MELLITUS
     Dosage: UNK
     Route: 048
     Dates: end: 20130507
  3. DEPAKENE [Concomitant]
     Dosage: UNK
  4. WINTERMIN [Concomitant]
     Dosage: UNK
  5. DEPAS [Concomitant]
     Dosage: UNK
  6. EURODIN (ESTAZOLAM) [Concomitant]
     Dosage: UNK

REACTIONS (5)
  - Rash morbilliform [Not Recovered/Not Resolved]
  - C-reactive protein increased [Not Recovered/Not Resolved]
  - Neutrophil count increased [Not Recovered/Not Resolved]
  - Hepatic function abnormal [Not Recovered/Not Resolved]
  - Pyrexia [Not Recovered/Not Resolved]
